FAERS Safety Report 21940203 (Version 1)
Quarter: 2023Q1

REPORT INFORMATION
  Report Type: Report from Study
  Country: US (occurrence: US)
  Receive Date: 20230201
  Receipt Date: 20230201
  Transmission Date: 20230418
  Serious: No
  Sender: FDA-Public Use
  Company Number: US-EXELIXIS-CABO-22049985

PATIENT
  Age: 5 Year
  Sex: Male

DRUGS (3)
  1. CABOMETYX [Suspect]
     Active Substance: CABOZANTINIB S-MALATE
     Indication: Neurofibromatosis
     Dosage: 20 MG (4 DAYS EACH WEEK) AND 40 MG (3 DAYS EACH WEEK)
     Route: 048
     Dates: start: 20220311
  2. CABOMETYX [Suspect]
     Active Substance: CABOZANTINIB S-MALATE
     Dosage: 20 MG (4 DAYS EACH WEEK) AND 40 MG (3 DAYS EACH WEEK)
     Route: 048
  3. CABOMETYX [Suspect]
     Active Substance: CABOZANTINIB S-MALATE
     Dosage: 20 MG (4 DAYS EACH WEEK) AND 40 MG (3 DAYS EACH WEEK)
     Route: 048

REACTIONS (8)
  - Pain in jaw [Recovered/Resolved]
  - Stomatitis [Recovered/Resolved]
  - Haematochezia [Unknown]
  - Nausea [Unknown]
  - Fatigue [Unknown]
  - Constipation [Unknown]
  - Product dose omission issue [Unknown]
  - Off label use [Unknown]

NARRATIVE: CASE EVENT DATE: 20220315
